FAERS Safety Report 9185283 (Version 1)
Quarter: 2012Q4

REPORT INFORMATION
  Report Type: Report from Study
  Country: US (occurrence: US)
  Receive Date: 20121101
  Receipt Date: 20121101
  Transmission Date: 20130627
  Serious: Yes (Other)
  Sender: FDA-Public Use
  Company Number: US-ABBOTT-12P-163-0996905-00

PATIENT
  Sex: Female

DRUGS (2)
  1. HUMIRA [Suspect]
     Indication: JUVENILE ARTHRITIS
     Route: 058
     Dates: start: 200801, end: 201105
  2. HUMIRA [Suspect]
     Route: 058
     Dates: start: 201108

REACTIONS (3)
  - Nasal septum deviation [Unknown]
  - Nasal turbinate hypertrophy [Unknown]
  - Arthritis [Unknown]
